FAERS Safety Report 10247679 (Version 1)
Quarter: 2014Q2

REPORT INFORMATION
  Report Type: Spontaneous
  Country: US (occurrence: US)
  Receive Date: 20140619
  Receipt Date: 20140619
  Transmission Date: 20141212
  Serious: Yes (Other)
  Sender: FDA-Public Use
  Company Number: US-PFIZER INC-2014167105

PATIENT
  Age: 72 Year
  Sex: Female
  Weight: 44.44 kg

DRUGS (1)
  1. NORPACE [Suspect]
     Indication: ARRHYTHMIA
     Dosage: 100 MG, 2X/DAY
     Dates: start: 201406

REACTIONS (6)
  - Tracheal disorder [Unknown]
  - Drug intolerance [Unknown]
  - Dehydration [Unknown]
  - Malaise [Unknown]
  - Abdominal discomfort [Unknown]
  - Diarrhoea [Unknown]
